FAERS Safety Report 8248444-4 (Version None)
Quarter: 2012Q1

REPORT INFORMATION
  Report Type: 
  Country: None (occurrence: None)
  Receive Date: 20120330
  Receipt Date: 20120322
  Transmission Date: 20120608
  Serious: Yes (Hospitalization)
  Sender: FDA-Public Use
  Company Number: US-ELI_LILLY_AND_COMPANY-US201110000874

PATIENT
  Sex: Female

DRUGS (4)
  1. CYMBALTA [Concomitant]
     Indication: NERVOUS SYSTEM DISORDER
     Dosage: 60 MG, QD
  2. OMEPRAZOLE [Concomitant]
  3. FORTEO [Suspect]
     Indication: OSTEOPOROSIS
     Dosage: 20 UG, QD
     Dates: start: 20110923
  4. FORTEO [Suspect]
     Dosage: 20 UG, QD

REACTIONS (6)
  - NAUSEA [None]
  - DRUG DOSE OMISSION [None]
  - COLITIS [None]
  - BLOOD PRESSURE FLUCTUATION [None]
  - ARTHRALGIA [None]
  - MYALGIA [None]
